FAERS Safety Report 16890335 (Version 1)
Quarter: 2019Q4

REPORT INFORMATION
  Report Type: Spontaneous
  Country: US (occurrence: US)
  Receive Date: 20191007
  Receipt Date: 20191007
  Transmission Date: 20200122
  Serious: Yes (Hospitalization, Other)
  Sender: FDA-Public Use
  Company Number: US-SUNOVION-2019SUN004122

PATIENT
  Sex: Female
  Weight: 88 kg

DRUGS (2)
  1. ALBUTEROL. [Concomitant]
     Active Substance: ALBUTEROL
     Indication: BRONCHIECTASIS
     Dosage: UNK
     Route: 065
  2. LONHALA MAGNAIR [Suspect]
     Active Substance: GLYCOPYRROLATE
     Indication: BRONCHIECTASIS
     Dosage: 25 MCG/1 ML, BID
     Route: 055

REACTIONS (5)
  - Off label use [Unknown]
  - Cough [Not Recovered/Not Resolved]
  - Drug ineffective [Not Recovered/Not Resolved]
  - Choking [Not Recovered/Not Resolved]
  - Product administration error [Unknown]
